FAERS Safety Report 9356115 (Version 1)
Quarter: 2013Q2

REPORT INFORMATION
  Report Type: Report from Study
  Country: FR (occurrence: FR)
  Receive Date: 20130619
  Receipt Date: 20130619
  Transmission Date: 20140414
  Serious: Yes (Other)
  Sender: FDA-Public Use
  Company Number: FR-PFIZER INC-2013177779

PATIENT
  Age: 56 Year
  Sex: Male

DRUGS (2)
  1. PAMIDRONATE DISODIUM [Suspect]
     Indication: RHEUMATOID ARTHRITIS
     Dosage: 18 MG CUMULATIVE DOSE FOR 12 MONTHS
  2. ZOLEDRONATE [Suspect]
     Indication: RHEUMATOID ARTHRITIS
     Dosage: 48 MG, CUMULATIVE DOSE FOR 36 MONTHS
     Route: 042

REACTIONS (1)
  - Osteonecrosis of jaw [Recovering/Resolving]
